FAERS Safety Report 7978779-1 (Version None)
Quarter: 2011Q4

REPORT INFORMATION
  Report Type: 
  Country: None (occurrence: None)
  Receive Date: 20111214
  Receipt Date: 20111207
  Transmission Date: 20120403
  Serious: Yes (Hospitalization)
  Sender: FDA-Public Use
  Company Number: US-BRISTOL-MYERS SQUIBB COMPANY-14026710

PATIENT
  Age: 85 Year
  Sex: Male
  Weight: 80 kg

DRUGS (16)
  1. CARBOPLATIN [Suspect]
     Indication: NON-SMALL CELL LUNG CANCER
     Dosage: UNIT DOSE AUC 6 EVERY 3 WEEKS
     Route: 042
     Dates: start: 20071130
  2. LUTEIN [Concomitant]
     Route: 048
     Dates: start: 20071001, end: 20071212
  3. CP-751,871 [Suspect]
     Indication: NON-SMALL CELL LUNG CANCER
     Dosage: ALSO 20MG/KG EVERY 3 WEEKS
     Route: 042
     Dates: start: 20071130
  4. OMEPRAZOLE [Concomitant]
     Route: 048
     Dates: start: 19970101
  5. NORVASC [Concomitant]
     Route: 048
     Dates: start: 20020101
  6. VITAMIN D [Concomitant]
     Route: 048
     Dates: start: 20020101
  7. LORAZEPAM [Concomitant]
     Route: 048
     Dates: start: 20071001
  8. DIOVAN HCT [Concomitant]
     Route: 048
     Dates: start: 20020101, end: 20071208
  9. AMBIEN [Concomitant]
     Route: 048
     Dates: start: 20071001
  10. PACLITAXEL [Suspect]
     Indication: NON-SMALL CELL LUNG CANCER
     Dosage: CUMULATIVE DOSE OF 398 MG. EVERY 3 WEEKS
     Route: 042
     Dates: start: 20071130
  11. FOSAMAX [Concomitant]
     Route: 048
     Dates: start: 20020101
  12. LEVOTHYROXINE SODIUM [Concomitant]
     Route: 048
     Dates: start: 19970101
  13. PREDNISONE [Concomitant]
     Route: 048
     Dates: start: 20050101
  14. XOPENEX [Concomitant]
     Route: 048
     Dates: start: 20071112
  15. DIGOXIN [Suspect]
     Dosage: INTERRUPETED ON 12DEC07.
     Route: 048
     Dates: start: 20020101, end: 20071212
  16. ZETIA [Concomitant]
     Route: 048
     Dates: start: 20020101

REACTIONS (4)
  - CONFUSIONAL STATE [None]
  - NEUTROPENIA [None]
  - MUCOSAL INFLAMMATION [None]
  - DEHYDRATION [None]
